FAERS Safety Report 23712159 (Version 1)
Quarter: 2024Q2

REPORT INFORMATION
  Report Type: Spontaneous
  Country: US (occurrence: None)
  Receive Date: 20240404
  Receipt Date: 20240404
  Transmission Date: 20240716
  Serious: Yes (Death)
  Sender: FDA-Public Use
  Company Number: None

PATIENT
  Sex: Female

DRUGS (1)
  1. FLUOROURACIL [Suspect]
     Active Substance: FLUOROURACIL

REACTIONS (5)
  - Depressed level of consciousness [None]
  - Illness [None]
  - Brief resolved unexplained event [None]
  - Dihydropyrimidine dehydrogenase deficiency [None]
  - Toxicity to various agents [None]

NARRATIVE: CASE EVENT DATE: 20140329
